FAERS Safety Report 14819899 (Version 1)
Quarter: 2018Q2

REPORT INFORMATION
  Report Type: Report from Study
  Country: US (occurrence: US)
  Receive Date: 20180427
  Receipt Date: 20180427
  Transmission Date: 20180711
  Serious: Yes (Other)
  Sender: FDA-Public Use
  Company Number: US-ROCHE-2111834

PATIENT
  Sex: Female

DRUGS (4)
  1. XELODA [Suspect]
     Active Substance: CAPECITABINE
     Indication: COLORECTAL CANCER METASTATIC
     Route: 048
     Dates: start: 2016, end: 2016
  2. OXALIPLATIN. [Concomitant]
     Active Substance: OXALIPLATIN
  3. HERCEPTIN [Suspect]
     Active Substance: TRASTUZUMAB
     Indication: COLORECTAL CANCER METASTATIC
     Route: 042
     Dates: start: 2018
  4. PERJETA [Suspect]
     Active Substance: PERTUZUMAB
     Indication: COLORECTAL CANCER METASTATIC
     Route: 042
     Dates: start: 2018

REACTIONS (6)
  - Palmar-plantar erythrodysaesthesia syndrome [Unknown]
  - Off label use [Unknown]
  - Neuropathy peripheral [Unknown]
  - Platelet count decreased [Unknown]
  - White blood cell count decreased [Unknown]
  - Rhinorrhoea [Unknown]

NARRATIVE: CASE EVENT DATE: 2016
